FAERS Safety Report 9914175 (Version 1)
Quarter: 2014Q1

REPORT INFORMATION
  Report Type: Spontaneous
  Country: US (occurrence: None)
  Receive Date: 20140218
  Receipt Date: 20140218
  Transmission Date: 20141002
  Serious: Yes (Hospitalization)
  Sender: FDA-Public Use
  Company Number: 7268757

PATIENT
  Age: 75 Year
  Sex: Male

DRUGS (7)
  1. LEVOTHYROXINE [Suspect]
     Indication: PRODUCT USED FOR UNKNOWN INDICATION
  2. DAPSONE [Suspect]
     Indication: PRODUCT USED FOR UNKNOWN INDICATION
  3. PREDNISONE [Concomitant]
  4. CELLCEPT (MYCOPHENOLATE MOFETIL) TABLET [Concomitant]
  5. LAMOTRIGINE [Concomitant]
  6. COUMADIN SODIUM [Concomitant]
  7. FINASTERIDE [Concomitant]

REACTIONS (2)
  - Methaemoglobinaemia [None]
  - Diastolic dysfunction [None]
